FAERS Safety Report 12770591 (Version 1)
Quarter: 2016Q3

REPORT INFORMATION
  Report Type: Spontaneous
  Country: FR (occurrence: FR)
  Receive Date: 20160922
  Receipt Date: 20160922
  Transmission Date: 20161109
  Serious: Yes (Hospitalization)
  Sender: FDA-Public Use
  Company Number: FR-ORION CORPORATION ORION PHARMA-TREX2016-1750

PATIENT
  Age: 52 Year
  Sex: Female

DRUGS (2)
  1. IMETH [Suspect]
     Active Substance: METHOTREXATE SODIUM
     Indication: RHEUMATOID ARTHRITIS
     Route: 048
     Dates: start: 20160805, end: 20160812
  2. CLAMOXYL [Suspect]
     Active Substance: AMOXICILLIN\CLAVULANIC ACID
     Indication: DENTAL CARE
     Route: 048
     Dates: start: 20160804, end: 20160809

REACTIONS (9)
  - Accidental overdose [Unknown]
  - Cheilitis [Recovering/Resolving]
  - Agranulocytosis [Recovering/Resolving]
  - Product name confusion [Unknown]
  - Oral mucosa erosion [Unknown]
  - Inappropriate schedule of drug administration [Unknown]
  - Erythema multiforme [Unknown]
  - Blister [Unknown]
  - Rash [Recovering/Resolving]

NARRATIVE: CASE EVENT DATE: 20160805
